FAERS Safety Report 6381472-2 (Version None)
Quarter: 2009Q3

REPORT INFORMATION
  Report Type: 
  Country: None (occurrence: None)
  Receive Date: 20090924
  Receipt Date: 20090914
  Transmission Date: 20100115
  Serious: No
  Sender: FDA-Public Use
  Company Number: 2009010394

PATIENT
  Age: 30 Year
  Sex: Male
  Weight: 74.8435 kg

DRUGS (4)
  1. FENTORA [Suspect]
     Indication: HEADACHE
     Dosage: (400 MCG,CAN'T RECALL FREQUENCY),BU
     Route: 002
     Dates: start: 20080101
  2. FENTORA [Suspect]
     Indication: MIGRAINE
     Dosage: (400 MCG,CAN'T RECALL FREQUENCY),BU
     Route: 002
     Dates: start: 20080101
  3. ROXICODONE [Concomitant]
  4. PHENERGAN (PROMETHAZINE) [Concomitant]

REACTIONS (4)
  - CONTRAINDICATION TO MEDICAL TREATMENT [None]
  - DRUG EFFECT DECREASED [None]
  - GINGIVAL PAIN [None]
  - MEDICATION ERROR [None]
